FAERS Safety Report 15629001 (Version 1)
Quarter: 2018Q4

REPORT INFORMATION
  Report Type: Spontaneous
  Country: ES (occurrence: ES)
  Receive Date: 20181116
  Receipt Date: 20181116
  Transmission Date: 20190205
  Serious: Yes (Other)
  Sender: FDA-Public Use
  Company Number: ES-TOLMAR, INC.-TOLG20180645

PATIENT
  Age: 38 Year
  Sex: Female

DRUGS (1)
  1. ATRIDOX [Suspect]
     Active Substance: DOXYCYCLINE HYCLATE
     Indication: PRODUCT USED FOR UNKNOWN INDICATION
     Dosage: 100 MG
     Route: 048

REACTIONS (6)
  - Odynophagia [Unknown]
  - Neck pain [Unknown]
  - Oesophageal ulcer [Unknown]
  - Chest pain [Unknown]
  - Dysphagia [Unknown]
  - Wrong technique in product usage process [None]
